FAERS Safety Report 8915843 (Version 1)
Quarter: 2012Q4

REPORT INFORMATION
  Report Type: 
  Country: US (occurrence: US)
  Receive Date: 20121119
  Receipt Date: 20121119
  Transmission Date: 20130627
  Serious: Yes (Hospitalization)
  Sender: FDA-Public Use
  Company Number: US-CELGENEUS-163-21880-12051965

PATIENT
  Age: 66 Year
  Sex: Female

DRUGS (2)
  1. REVLIMID [Suspect]
     Indication: MULTIPLE MYELOMA
     Dosage: 10 Milligram
     Route: 048
     Dates: start: 20110328
  2. REVLIMID [Suspect]
     Dosage: 5 Milligram
     Route: 048
     Dates: start: 20120509

REACTIONS (3)
  - Crohn^s disease [Unknown]
  - Diverticulitis [Unknown]
  - Neutrophil count decreased [Recovered/Resolved]
